FAERS Safety Report 7619208-7 (Version None)
Quarter: 2011Q3

REPORT INFORMATION
  Report Type: 
  Country: None (occurrence: None)
  Receive Date: 20110718
  Receipt Date: 20110712
  Transmission Date: 20111222
  Serious: Yes (Death, Hospitalization, Other)
  Sender: FDA-Public Use
  Company Number: PHHO2010US09887

PATIENT
  Sex: Male
  Weight: 88 kg

DRUGS (14)
  1. FOLFOX-4 [Concomitant]
  2. COMPAZINE [Concomitant]
  3. IBUPROFEN [Concomitant]
  4. AFINITOR [Suspect]
     Indication: COLORECTAL CANCER
     Dosage: 5 MG, QOD
     Route: 048
     Dates: start: 20100618, end: 20100622
  5. SEDATIVES [Suspect]
  6. OXYCODONE HCL [Concomitant]
  7. AVASTIN [Suspect]
     Indication: COLORECTAL CANCER
     Dosage: UNK
     Dates: start: 20100618, end: 20100622
  8. ATIVAN [Concomitant]
  9. AMBIEN [Concomitant]
  10. ZOFRAN [Concomitant]
  11. PERCOCET [Concomitant]
  12. REGLAN [Concomitant]
  13. DEPAKOTE [Concomitant]
  14. PAXIL [Concomitant]

REACTIONS (12)
  - DEHYDRATION [None]
  - PROCTALGIA [None]
  - NAUSEA [None]
  - ABSCESS INTESTINAL [None]
  - DEATH [None]
  - ILEAL FISTULA [None]
  - MUSCULOSKELETAL PAIN [None]
  - SWELLING [None]
  - PURULENT DISCHARGE [None]
  - CONFUSIONAL STATE [None]
  - ERYTHEMA [None]
  - PYREXIA [None]
